FAERS Safety Report 25954802 (Version 1)
Quarter: 2025Q4

REPORT INFORMATION
  Report Type: Spontaneous
  Country: CN (occurrence: CN)
  Receive Date: 20251024
  Receipt Date: 20251024
  Transmission Date: 20260118
  Serious: Yes (Hospitalization, Other)
  Sender: Phathom Pharmaceuticals
  Company Number: CN-PHATHOM PHARMACEUTICALS INC.-2025PHT03064

PATIENT

DRUGS (1)
  1. VONOPRAZAN [Suspect]
     Active Substance: VONOPRAZAN
     Indication: Gastrooesophageal reflux disease
     Dosage: 20 MG, QD
     Route: 048

REACTIONS (1)
  - Leukaemia [Unknown]

NARRATIVE: CASE EVENT DATE: 20251009
